FAERS Safety Report 6603682-9 (Version None)
Quarter: 2010Q1

REPORT INFORMATION
  Report Type: 
  Country: None (occurrence: None)
  Receive Date: 20100226
  Receipt Date: 20091020
  Transmission Date: 20100710
  Serious: No
  Sender: FDA-Public Use
  Company Number: US-TYCO HEALTHCARE/MALLINCKRODT-T200901914

PATIENT
  Sex: Male

DRUGS (1)
  1. PROPOXYPHENE HCL AND ACETAMINOPHEN [Suspect]

REACTIONS (1)
  - FEELING ABNORMAL [None]
